FAERS Safety Report 7493091-5 (Version None)
Quarter: 2011Q2

REPORT INFORMATION
  Report Type: 
  Country: None (occurrence: None)
  Receive Date: 20110519
  Receipt Date: 20110519
  Transmission Date: 20111010
  Serious: Yes (Other)
  Sender: FDA-Public Use
  Company Number: None

PATIENT
  Sex: Male
  Weight: 77.1115 kg

DRUGS (1)
  1. DIVALPROEX SODIUM [Suspect]
     Dosage: 2500MG DAILY PO
     Route: 048

REACTIONS (2)
  - ANTICONVULSANT DRUG LEVEL ABOVE THERAPEUTIC [None]
  - MEDICATION ERROR [None]
